FAERS Safety Report 13503887 (Version 1)
Quarter: 2017Q2

REPORT INFORMATION
  Report Type: Other
  Country: US (occurrence: US)
  Receive Date: 20170502
  Receipt Date: 20170502
  Transmission Date: 20170830
  Serious: Yes (Other)
  Sender: FDA-Public Use
  Company Number: US-SIM_00764_2017

PATIENT
  Age: 82 Year
  Sex: Male

DRUGS (2)
  1. ALLERGY EYE RELIEF, 10 ML (HOMEOPATHIC) [Suspect]
     Active Substance: HOMEOPATHICS
     Indication: EYE PRURITUS
     Dosage: 1 DROP IN EACH EYE/2-3 TIMES A DAY/
     Route: 047
     Dates: start: 20170322, end: 20170326
  2. ALLERGY EYE RELIEF, 10 ML (HOMEOPATHIC) [Suspect]
     Active Substance: HOMEOPATHICS
     Indication: DRY EYE
     Dosage: 1 DROP IN EACH EYE/2-3 TIMES A DAY/
     Route: 047
     Dates: start: 20170322, end: 20170326

REACTIONS (9)
  - Intraocular pressure increased [Unknown]
  - Dermatitis contact [Unknown]
  - Periorbital oedema [Recovering/Resolving]
  - Therapy non-responder [Unknown]
  - Rash [Recovering/Resolving]
  - Eye disorder [Unknown]
  - Drug administration error [Recovered/Resolved]
  - Eye pruritus [Recovering/Resolving]
  - Insomnia [None]

NARRATIVE: CASE EVENT DATE: 201703
